FAERS Safety Report 8581380-2 (Version None)
Quarter: 2012Q3

REPORT INFORMATION
  Report Type: 
  Country: None (occurrence: None)
  Receive Date: 20120809
  Receipt Date: 20120801
  Transmission Date: 20120928
  Serious: Yes (Hospitalization)
  Sender: FDA-Public Use
  Company Number: US-BAYER-2012-079101

PATIENT
  Age: 43 Year
  Sex: Female
  Weight: 90.703 kg

DRUGS (7)
  1. DROSPIRENONE AND ETHINYL ESTRADIOL [Suspect]
     Dosage: UNK
     Dates: start: 20080724, end: 20110502
  2. CARDIZEM [Concomitant]
     Dosage: 20 MG, UNK
     Route: 042
  3. YASMIN [Suspect]
     Dosage: UNK
     Dates: start: 20050826, end: 20080724
  4. NASONEX [Concomitant]
     Route: 045
  5. ASPIRIN [Concomitant]
     Dosage: 325 MG, UNK
     Dates: start: 20110502
  6. LISINOPRIL [Concomitant]
     Dosage: 10 MG, DAILY
     Route: 048
  7. LOPRESSOR [Concomitant]
     Indication: HYPERTENSION
     Route: 042

REACTIONS (1)
  - PULMONARY EMBOLISM [None]
